FAERS Safety Report 5582031-1 (Version None)
Quarter: 2008Q1

REPORT INFORMATION
  Report Type: 
  Country: None (occurrence: None)
  Receive Date: 20080104
  Receipt Date: 20071220
  Transmission Date: 20080703
  Serious: Yes (Hospitalization)
  Sender: FDA-Public Use
  Company Number: CA-GENENTECH-249685

PATIENT
  Sex: Female
  Weight: 61.5 kg

DRUGS (15)
  1. BEVACIZUMAB [Suspect]
     Indication: COLON CANCER
     Dosage: 326 MG, Q2W
     Route: 042
     Dates: start: 20070404
  2. OXALIPLATIN [Suspect]
     Indication: COLON CANCER
     Dosage: 137 MG, Q2W
     Route: 042
     Dates: start: 20070404
  3. FLUOROURACIL [Suspect]
     Dosage: 650 MG, Q2W
     Route: 042
     Dates: start: 20070404
  4. LEUCOVORIN [Suspect]
     Indication: COLON CANCER
     Dosage: 320 MG, Q2W
     Dates: start: 20070404
  5. RABEPRAZOLE SODIUM [Concomitant]
     Indication: DRUG USE FOR UNKNOWN INDICATION
     Dosage: UNK, UNK
     Dates: start: 20071001, end: 20071126
  6. ZOPHREN [Concomitant]
     Indication: DRUG USE FOR UNKNOWN INDICATION
     Dates: start: 20070404
  7. PROCHLORPERAZINE [Concomitant]
     Indication: DRUG USE FOR UNKNOWN INDICATION
     Dosage: UNK, UNK
     Dates: start: 20070724
  8. ALUMINUM HYDROXIDE GEL [Concomitant]
     Indication: DRUG USE FOR UNKNOWN INDICATION
     Dosage: UNK, UNK
     Dates: start: 20071001, end: 20071126
  9. NORVASC [Concomitant]
     Indication: DRUG USE FOR UNKNOWN INDICATION
     Dates: start: 20070523
  10. BISOPROLOL [Concomitant]
     Indication: DRUG USE FOR UNKNOWN INDICATION
     Dates: start: 20070626
  11. RAMIPRIL [Concomitant]
     Indication: DRUG USE FOR UNKNOWN INDICATION
     Dosage: UNK, UNK
     Dates: start: 20070808
  12. POTASSIUM CHLORIDE [Concomitant]
     Indication: DRUG USE FOR UNKNOWN INDICATION
     Dates: start: 20070731, end: 20071015
  13. MIRACLE MOUTH WASH (UNK INGREDIENT) [Concomitant]
     Indication: DRUG USE FOR UNKNOWN INDICATION
  14. GENERIC COMPONENT(S) NOT KNOWN [Concomitant]
     Indication: DRUG USE FOR UNKNOWN INDICATION
     Dates: start: 20070501, end: 20071126
  15. IMODIUM [Concomitant]
     Indication: DRUG USE FOR UNKNOWN INDICATION
     Dates: start: 20070731

REACTIONS (1)
  - GASTROENTERITIS VIRAL [None]
